FAERS Safety Report 19593184 (Version 3)
Quarter: 2021Q3

REPORT INFORMATION
  Report Type: Spontaneous
  Country: DE (occurrence: DE)
  Receive Date: 20210722
  Receipt Date: 20210819
  Transmission Date: 20211014
  Serious: Yes (Other)
  Sender: FDA-Public Use
  Company Number: NVSC2021DE154882

PATIENT
  Age: 67 Year

DRUGS (4)
  1. ELIQUIS [Suspect]
     Active Substance: APIXABAN
     Indication: PULMONARY EMBOLISM
     Dosage: UNK
     Route: 065
     Dates: start: 201711
  2. PEMETREXED. [Suspect]
     Active Substance: PEMETREXED
     Indication: NON-SMALL CELL LUNG CANCER
     Dosage: UNK
     Route: 065
     Dates: start: 201801
  3. CARBOPLATIN. [Suspect]
     Active Substance: CARBOPLATIN
     Indication: NON-SMALL CELL LUNG CANCER
     Dosage: UNK
     Route: 065
     Dates: start: 201801
  4. NIVOLUMAB [Suspect]
     Active Substance: NIVOLUMAB
     Indication: NON-SMALL CELL LUNG CANCER
     Dosage: UNK
     Route: 065
     Dates: start: 201801

REACTIONS (9)
  - Metastases to central nervous system [Unknown]
  - Skin toxicity [Unknown]
  - Spinal cord compression [Unknown]
  - Metastases to liver [Unknown]
  - Lymph node pain [Unknown]
  - Gait disturbance [Unknown]
  - Lymphadenopathy [Unknown]
  - Pain [Unknown]
  - Jaundice [Unknown]

NARRATIVE: CASE EVENT DATE: 201803
